FAERS Safety Report 17148844 (Version 3)
Quarter: 2020Q1

REPORT INFORMATION
  Report Type: Spontaneous
  Country: DE (occurrence: DE)
  Receive Date: 20191213
  Receipt Date: 20200213
  Transmission Date: 20200409
  Serious: Yes (Life-Threatening, Disabling, Other)
  Sender: FDA-Public Use
  Company Number: DE-BRISTOL-MYERS SQUIBB COMPANY-BMS-2019-117159

PATIENT
  Age: 75 Year
  Sex: Male
  Weight: 78 kg

DRUGS (3)
  1. NIVOLUMAB [Suspect]
     Active Substance: NIVOLUMAB
     Indication: MALIGNANT MELANOMA
     Dosage: 1 MILLIGRAM/KILOGRAM
     Route: 065
     Dates: start: 20181221, end: 20190118
  2. NIVOLUMAB [Suspect]
     Active Substance: NIVOLUMAB
     Indication: PRODUCT USED FOR UNKNOWN INDICATION
     Dosage: 460 MILLIGRAM
     Route: 065
     Dates: end: 20190301
  3. IPILIMUMAB [Suspect]
     Active Substance: IPILIMUMAB
     Indication: MALIGNANT MELANOMA
     Dosage: 3 MILLIGRAM/KILOGRAM
     Route: 065
     Dates: start: 20181221, end: 20190118

REACTIONS (8)
  - Pneumonitis [Recovering/Resolving]
  - General physical health deterioration [Unknown]
  - Blindness [Not Recovered/Not Resolved]
  - Endocarditis [Unknown]
  - Rash [Recovering/Resolving]
  - Sepsis [Recovered/Resolved]
  - Endophthalmitis [Not Recovered/Not Resolved]
  - Cerebral ischaemia [Unknown]

NARRATIVE: CASE EVENT DATE: 201902
